FAERS Safety Report 12137121 (Version 3)
Quarter: 2016Q2

REPORT INFORMATION
  Report Type: Spontaneous
  Country: IT (occurrence: IT)
  Receive Date: 20160302
  Receipt Date: 20160408
  Transmission Date: 20160815
  Serious: Yes (Other)
  Sender: FDA-Public Use
  Company Number: PHHY2016IT024140

PATIENT
  Sex: Female

DRUGS (3)
  1. VALSARTAN. [Concomitant]
     Active Substance: VALSARTAN
     Indication: ESSENTIAL HYPERTENSION
     Dosage: 160 MG, UNK
     Route: 065
  2. TASIGNA [Suspect]
     Active Substance: NILOTINIB
     Indication: CHRONIC MYELOID LEUKAEMIA
     Dosage: 300 MG, BID
     Route: 065
     Dates: start: 201401
  3. ATENOLOL. [Concomitant]
     Active Substance: ATENOLOL
     Indication: ESSENTIAL HYPERTENSION
     Dosage: 0.5 DF (1/2 POSOLOGIC UNIT)
     Route: 065

REACTIONS (5)
  - Visual impairment [Unknown]
  - Vitreous haemorrhage [Unknown]
  - Retinal exudates [Unknown]
  - Neovascularisation [Unknown]
  - Retinal ischaemia [Unknown]

NARRATIVE: CASE EVENT DATE: 20151228
